FAERS Safety Report 26150840 (Version 1)
Quarter: 2025Q4

REPORT INFORMATION
  Report Type: Spontaneous
  Country: RU (occurrence: RU)
  Receive Date: 20251212
  Receipt Date: 20251212
  Transmission Date: 20260117
  Serious: Yes (Other)
  Sender: TEVA
  Company Number: RU-TEVA-VS-3400977

PATIENT

DRUGS (2)
  1. AJOVY [Suspect]
     Active Substance: FREMANEZUMAB-VFRM
     Indication: Product used for unknown indication
     Route: 065
     Dates: start: 202509
  2. AJOVY [Suspect]
     Active Substance: FREMANEZUMAB-VFRM
     Indication: Product used for unknown indication
     Route: 065
     Dates: start: 202511

REACTIONS (14)
  - Anxiety [Unknown]
  - Somnolence [Unknown]
  - Brain fog [Unknown]
  - Asthenia [Unknown]
  - Migraine [Recovering/Resolving]
  - Sleep disorder [Unknown]
  - Arrhythmia [Unknown]
  - Condition aggravated [Unknown]
  - Dysphagia [Unknown]
  - Swelling face [Unknown]
  - Menstrual disorder [Unknown]
  - Gastrooesophageal reflux disease [Unknown]
  - Abdominal distension [Unknown]
  - Headache [Recovering/Resolving]

NARRATIVE: CASE EVENT DATE: 20250901
